FAERS Safety Report 6181845-7 (Version None)
Quarter: 2009Q2

REPORT INFORMATION
  Report Type: 
  Country: None (occurrence: None)
  Receive Date: 20090506
  Receipt Date: 20090424
  Transmission Date: 20091009
  Serious: Yes (Other)
  Sender: FDA-Public Use
  Company Number: GB-ELI_LILLY_AND_COMPANY-GB200703002870

PATIENT
  Age: 15 Year
  Sex: Male
  Weight: 71.65 kg

DRUGS (4)
  1. STRATTERA [Suspect]
     Indication: ATTENTION DEFICIT/HYPERACTIVITY DISORDER
     Dosage: 70 MG, UNK
     Route: 048
     Dates: start: 20041022, end: 20060524
  2. STRATTERA [Suspect]
     Dosage: UNK, UNKNOWN
     Route: 065
     Dates: start: 20060626
  3. CANNABIS [Concomitant]
     Dosage: UNK, UNKNOWN
     Route: 048
  4. ALCOHOL [Concomitant]
     Dosage: UNK, UNKNOWN
     Route: 065

REACTIONS (4)
  - DEPRESSION [None]
  - PSYCHOMOTOR RETARDATION [None]
  - SOCIAL AVOIDANT BEHAVIOUR [None]
  - TEARFULNESS [None]
